FAERS Safety Report 20066858 (Version 2)
Quarter: 2022Q1

REPORT INFORMATION
  Report Type: Spontaneous
  Country: CA (occurrence: CA)
  Receive Date: 20211115
  Receipt Date: 20220114
  Transmission Date: 20220423
  Serious: Yes (Other)
  Sender: FDA-Public Use
  Company Number: CA-CELLTRION INC.-2021CA012313

PATIENT

DRUGS (5)
  1. INFLECTRA [Suspect]
     Active Substance: INFLIXIMAB-DYYB
     Indication: Uveitis
     Dosage: 200 MG Q 0, 2, 6, THEN EVERY 8 WEEKS
     Route: 042
     Dates: start: 20171219, end: 20180719
  2. INFLECTRA [Suspect]
     Active Substance: INFLIXIMAB-DYYB
     Indication: Juvenile idiopathic arthritis
     Dosage: 200 MG EVERY 6 WEEKS
     Route: 042
     Dates: start: 20180830
  3. METHOTREXATE [Concomitant]
     Active Substance: METHOTREXATE
     Dosage: 25 MG, WEEKLY (HAS ALTERNATED BETWEEN SC AND PO ROUTE)
     Route: 058
     Dates: start: 201611
  4. PRED FORTE [Concomitant]
     Active Substance: PREDNISOLONE ACETATE
     Dosage: UNK
  5. SULFASALAZINE [Concomitant]
     Active Substance: SULFASALAZINE
     Dosage: 1000 MG, 2X/DAY
     Route: 048
     Dates: start: 201708

REACTIONS (4)
  - Rhinitis [Not Recovered/Not Resolved]
  - Sinusitis [Unknown]
  - Condition aggravated [Recovered/Resolved]
  - Musculoskeletal stiffness [Unknown]

NARRATIVE: CASE EVENT DATE: 20210901
